FAERS Safety Report 9801044 (Version 2)
Quarter: 2014Q1

REPORT INFORMATION
  Report Type: Report from Study
  Country: US (occurrence: US)
  Receive Date: 20140107
  Receipt Date: 20140107
  Transmission Date: 20141002
  Serious: Yes (Life-Threatening, Hospitalization)
  Sender: FDA-Public Use
  Company Number: US-ROCHE-785039

PATIENT
  Age: 63 Year
  Sex: Male
  Weight: 94.1 kg

DRUGS (1)
  1. VISMODEGIB [Suspect]
     Indication: GLIOBLASTOMA MULTIFORME
     Dosage: LAST DOSE PRIOR TO SAE:02 MAY 2011, TOTAL DOSE:4200 MG, CYCLE 28 DAYS
     Route: 048
     Dates: start: 20110111, end: 20110502

REACTIONS (1)
  - Haematoma [Recovered/Resolved]
